FAERS Safety Report 14790426 (Version 1)
Quarter: 2018Q2

REPORT INFORMATION
  Report Type: Spontaneous
  Country: HR (occurrence: HR)
  Receive Date: 20180423
  Receipt Date: 20180423
  Transmission Date: 20180711
  Serious: Yes (Hospitalization)
  Sender: FDA-Public Use
  Company Number: HR-ELI_LILLY_AND_COMPANY-HR201804005707

PATIENT
  Age: 36 Year
  Sex: Male

DRUGS (1)
  1. ZYPADHERA [Suspect]
     Active Substance: OLANZAPINE PAMOATE
     Indication: PRODUCT USED FOR UNKNOWN INDICATION
     Dosage: UNK UNK, UNKNOWN
     Route: 065

REACTIONS (5)
  - Psychomotor skills impaired [Unknown]
  - Asthenia [Unknown]
  - Confusional state [Unknown]
  - Sedation [Unknown]
  - Tachycardia [Unknown]

NARRATIVE: CASE EVENT DATE: 20180209
